FAERS Safety Report 5004450-4 (Version None)
Quarter: 2006Q2

REPORT INFORMATION
  Report Type: 
  Country: None (occurrence: None)
  Receive Date: 20060517
  Receipt Date: 20051213
  Transmission Date: 20061013
  Serious: Yes (Other)
  Sender: FDA-Public Use
  Company Number: US-ROCHE-428729

PATIENT
  Age: 64 Year
  Sex: Female
  Weight: 113.4 kg

DRUGS (3)
  1. PEGASYS [Suspect]
     Indication: HEPATITIS C
     Route: 058
     Dates: start: 20050224, end: 20050405
  2. RIBAVIRIN [Suspect]
     Indication: HEPATITIS C
     Route: 048
     Dates: start: 20050224, end: 20050405
  3. COLCHICINE [Concomitant]
     Indication: JOINT STIFFNESS
     Route: 048

REACTIONS (10)
  - ANOREXIA [None]
  - CARDIAC FLUTTER [None]
  - CHEST PAIN [None]
  - FATIGUE [None]
  - HYPERTENSION [None]
  - INJECTION SITE DISCOLOURATION [None]
  - INJECTION SITE REACTION [None]
  - MITRAL VALVE INCOMPETENCE [None]
  - SINUS TACHYCARDIA [None]
  - SKIN DEPIGMENTATION [None]
